FAERS Safety Report 5954621-5 (Version None)
Quarter: 2008Q4

REPORT INFORMATION
  Report Type: 
  Country: None (occurrence: None)
  Receive Date: 20081117
  Receipt Date: 20081106
  Transmission Date: 20090506
  Serious: Yes (Hospitalization, Other)
  Sender: FDA-Public Use
  Company Number: US-AMGEN-KDL302509

PATIENT
  Sex: Female
  Weight: 45.9 kg

DRUGS (1)
  1. PROCRIT [Suspect]
     Indication: MYELODYSPLASTIC SYNDROME
     Route: 065
     Dates: start: 20080101

REACTIONS (6)
  - BONE MARROW DISORDER [None]
  - DEHYDRATION [None]
  - DEPRESSED MOOD [None]
  - FATIGUE [None]
  - MENTAL DISORDER [None]
  - URINARY TRACT INFECTION [None]
